FAERS Safety Report 23215199 (Version 1)
Quarter: 2023Q4

REPORT INFORMATION
  Report Type: Spontaneous
  Country: JP (occurrence: JP)
  Receive Date: 20231122
  Receipt Date: 20231122
  Transmission Date: 20240109
  Serious: Yes (Other)
  Sender: FDA-Public Use
  Company Number: JP-ORGANON-O2311JPN001732

PATIENT
  Sex: Female

DRUGS (1)
  1. LOSARTAN [Suspect]
     Active Substance: LOSARTAN
     Indication: Nephroprotective therapy
     Route: 048

REACTIONS (7)
  - Nephrotic syndrome [Unknown]
  - Blood sodium decreased [Unknown]
  - Muscle spasms [Unknown]
  - Dizziness [Recovering/Resolving]
  - Blood pressure decreased [Not Recovered/Not Resolved]
  - Product use in unapproved indication [Unknown]
  - Product prescribing issue [Unknown]
